FAERS Safety Report 8850020 (Version 4)
Quarter: 2013Q1

REPORT INFORMATION
  Report Type: Spontaneous
  Country: US (occurrence: US)
  Receive Date: 20121019
  Receipt Date: 20130103
  Transmission Date: 20140127
  Serious: No
  Sender: FDA-Public Use
  Company Number: US-VERTEX PHARMACEUTICAL INC.-2012-022802

PATIENT
  Age: 51 Year
  Sex: Female
  Weight: 79 kg

DRUGS (4)
  1. INCIVEK [Suspect]
     Indication: HEPATITIS C
     Dosage: 750 MG, TID
     Route: 048
     Dates: start: 20121009
  2. PEGINTRON                          /01543001/ [Suspect]
     Indication: HEPATITIS C
     Dosage: 120 ?G, QW
     Route: 058
     Dates: start: 20121009
  3. RIBAVIRIN [Suspect]
     Indication: HEPATITIS C
     Dosage: 400MG AM/ 600MG PM
     Route: 048
     Dates: start: 20121009, end: 201211
  4. RIBAVIRIN [Suspect]
     Dosage: UNK UNK, BID
     Route: 048

REACTIONS (7)
  - Headache [Not Recovered/Not Resolved]
  - Stomatitis [Recovered/Resolved]
  - Dry skin [Not Recovered/Not Resolved]
  - Rash generalised [Not Recovered/Not Resolved]
  - Blister [Recovered/Resolved]
  - Anaemia [Unknown]
  - Nausea [Not Recovered/Not Resolved]
